FAERS Safety Report 4475273-X (Version None)
Quarter: 2004Q4

REPORT INFORMATION
  Report Type: 
  Country: None (occurrence: None)
  Receive Date: 20041013
  Receipt Date: 20041013
  Transmission Date: 20050328
  Serious: Yes (Other)
  Sender: FDA-Public Use
  Company Number: None

PATIENT
  Age: 42 Year
  Sex: Female
  Weight: 68.0396 kg

DRUGS (18)
  1. MEPERIDINE HCL [Suspect]
     Indication: PAIN
     Dosage: 10 MG IV PRN (PCA)
     Route: 042
     Dates: start: 20040617, end: 20040621
  2. ESCITALOPRAM OXALATE [Suspect]
     Dosage: 20 MG DAILY
  3. CLARITIN [Concomitant]
  4. COMBIVENT [Concomitant]
  5. SEREVENT [Concomitant]
  6. LEXAPRO [Concomitant]
  7. FLONASE [Concomitant]
  8. SEROQUEL [Concomitant]
  9. FLOVENT [Concomitant]
  10. ZYRTEC [Concomitant]
  11. PREVACID [Concomitant]
  12. ASPIRIN [Concomitant]
  13. SINGULAIR [Concomitant]
  14. PRAVACHOL [Concomitant]
  15. GENTAMYCIN SULFATE [Concomitant]
  16. ZOSYN [Concomitant]
  17. FLAGYL [Concomitant]
  18. BENADRYL [Concomitant]

REACTIONS (4)
  - CARDIO-RESPIRATORY ARREST [None]
  - GRAND MAL CONVULSION [None]
  - LOSS OF CONSCIOUSNESS [None]
  - OVERDOSE [None]
